FAERS Safety Report 9420905 (Version 2)
Quarter: 2013Q4

REPORT INFORMATION
  Report Type: Spontaneous
  Country: GB (occurrence: None)
  Receive Date: 20130723
  Receipt Date: 20131115
  Transmission Date: 20140711
  Serious: Yes (Disabling)
  Sender: FDA-Public Use
  Company Number: GB-DEXPHARM-20130421

PATIENT
  Age: 69 Year
  Sex: Male
  Weight: 80 kg

DRUGS (2)
  1. VORICONAZOLE [Suspect]
     Indication: INTERVERTEBRAL DISCITIS
     Dosage: THE DOSE OF VORICOAZOLE WAS REDUCED TO ELSS THAN HALF TO 150MG BID
     Route: 042
     Dates: start: 20130510
  2. OMEPRAZOLE [Suspect]
     Dates: start: 20130514

REACTIONS (2)
  - Drug level increased [None]
  - Drug interaction [None]
